FAERS Safety Report 6811808-7 (Version None)
Quarter: 2010Q2

REPORT INFORMATION
  Report Type: 
  Country: None (occurrence: None)
  Receive Date: 20100628
  Receipt Date: 20100614
  Transmission Date: 20101027
  Serious: Yes (Hospitalization)
  Sender: FDA-Public Use
  Company Number: 2010002293

PATIENT
  Age: 49 Year
  Sex: Female

DRUGS (4)
  1. TARCEVA [Suspect]
     Indication: LUNG ADENOCARCINOMA
     Dosage: 100 MG, QD, ORAL
     Route: 048
     Dates: start: 20080514
  2. TEGRETOL [Concomitant]
  3. MUCOSOL (ACETYLCYSTEINE [Concomitant]
  4. MUCODYNE (CARBOCISTEINE) [Concomitant]

REACTIONS (3)
  - DECUBITUS ULCER [None]
  - INTERSTITIAL LUNG DISEASE [None]
  - PLEURAL EFFUSION [None]
